FAERS Safety Report 4751430-X (Version None)
Quarter: 2005Q3

REPORT INFORMATION
  Report Type: 
  Country: None (occurrence: None)
  Receive Date: 20050823
  Receipt Date: 20050823
  Transmission Date: 20060218
  Serious: No
  Sender: FDA-Public Use
  Company Number: None

PATIENT
  Sex: Female

DRUGS (1)
  1. ALBUMIN (HUMAN) [Suspect]
     Indication: PLASMAPHERESIS
     Dosage: IV     (1 TIME DURING PHERESIS)
     Route: 042

REACTIONS (8)
  - ANAPHYLACTIC REACTION [None]
  - CHEST DISCOMFORT [None]
  - COLD SWEAT [None]
  - CYANOSIS [None]
  - DYSPNOEA [None]
  - HYPERHIDROSIS [None]
  - HYPOTENSION [None]
  - SNEEZING [None]
